FAERS Safety Report 19221666 (Version 1)
Quarter: 2021Q2

REPORT INFORMATION
  Report Type: Spontaneous
  Country: TR (occurrence: TR)
  Receive Date: 20210505
  Receipt Date: 20210505
  Transmission Date: 20210717
  Serious: Yes (Other)
  Sender: FDA-Public Use
  Company Number: TR-UCBSA-2021020325

PATIENT
  Age: 67 Year
  Sex: Male

DRUGS (1)
  1. LEVETIRACETAM. [Suspect]
     Active Substance: LEVETIRACETAM
     Indication: SEIZURE
     Dosage: 500 MILLIGRAM
     Route: 048

REACTIONS (6)
  - Confusional state [Unknown]
  - Aura [Unknown]
  - Hyperhidrosis [Unknown]
  - Fatigue [Unknown]
  - Angina pectoris [Unknown]
  - Seizure [Unknown]
